FAERS Safety Report 8043631-2 (Version None)
Quarter: 2012Q1

REPORT INFORMATION
  Report Type: 
  Country: None (occurrence: None)
  Receive Date: 20120112
  Receipt Date: 20120104
  Transmission Date: 20120608
  Serious: Yes (Hospitalization, Other)
  Sender: FDA-Public Use
  Company Number: US-ASTRAZENECA-2010SE16733

PATIENT
  Age: 76 Year
  Sex: Female

DRUGS (1)
  1. NEXIUM [Suspect]
     Route: 048

REACTIONS (9)
  - SPINAL FRACTURE [None]
  - FALL [None]
  - MALAISE [None]
  - BARRETT'S OESOPHAGUS [None]
  - HERNIA [None]
  - POST PROCEDURAL COMPLICATION [None]
  - BRONCHITIS [None]
  - WRONG DRUG ADMINISTERED [None]
  - DRUG DOSE OMISSION [None]
